FAERS Safety Report 11718838 (Version 2)
Quarter: 2016Q4

REPORT INFORMATION
  Report Type: Spontaneous
  Country: BE (occurrence: BE)
  Receive Date: 20151110
  Receipt Date: 20161014
  Transmission Date: 20170206
  Serious: Yes (Hospitalization, Other)
  Sender: FDA-Public Use
  Company Number: BE-THROMBOGENICS NV-SPO-2015-2069

PATIENT
  Sex: Female

DRUGS (2)
  1. JETREA [Suspect]
     Active Substance: OCRIPLASMIN
     Dosage: 0.125 MG, ONE TIME DOSE
     Route: 031
     Dates: start: 20151002, end: 20151002
  2. JETREA [Suspect]
     Active Substance: OCRIPLASMIN
     Indication: VITREOUS ADHESIONS
     Dosage: 0.125 MG, ONE TIME DOSE
     Route: 031
     Dates: start: 20150227, end: 20150227

REACTIONS (4)
  - Lens dislocation [Unknown]
  - Drug effect incomplete [Unknown]
  - Angle closure glaucoma [Unknown]
  - Multiple use of single-use product [Unknown]
